FAERS Safety Report 8887696 (Version 1)
Quarter: 2012Q4

REPORT INFORMATION
  Report Type: 
  Country: BR (occurrence: BR)
  Receive Date: 20121106
  Receipt Date: 20121106
  Transmission Date: 20130627
  Serious: Yes (Other)
  Sender: FDA-Public Use
  Company Number: BR-AMGEN-BRASP2012048628

PATIENT
  Age: 65 Year
  Sex: Female
  Weight: 70 kg

DRUGS (4)
  1. ENBREL [Suspect]
     Indication: RHEUMATOID ARTHRITIS
     Dosage: 50 mg, once weekly
     Route: 058
     Dates: start: 201110
  2. ENBREL [Suspect]
     Dosage: 50 mg, once weekly
     Route: 058
     Dates: end: 201207
  3. RANITIDINE [Concomitant]
     Dosage: UNK
  4. CALCIUM [Concomitant]
     Dosage: UNK

REACTIONS (5)
  - Hypersensitivity [Recovering/Resolving]
  - Pruritus generalised [Recovering/Resolving]
  - Rash papular [Recovering/Resolving]
  - Immunodeficiency [Unknown]
  - Skin wound [Unknown]
